FAERS Safety Report 21670657 (Version 1)
Quarter: 2022Q4

REPORT INFORMATION
  Report Type: Spontaneous
  Country: HR (occurrence: HR)
  Receive Date: 20221202
  Receipt Date: 20221202
  Transmission Date: 20230113
  Serious: Yes (Other)
  Sender: FDA-Public Use
  Company Number: HR-ANIPHARMA-2022-HR-000012

PATIENT
  Age: 60 Year
  Sex: Female

DRUGS (4)
  1. ANASTROZOLE [Suspect]
     Active Substance: ANASTROZOLE
     Indication: Breast cancer
     Dosage: 1 MG DAILY
     Dates: start: 202204
  2. RIBOCICLIB [Suspect]
     Active Substance: RIBOCICLIB
     Indication: Breast cancer
     Dosage: 600 MG DAILY
     Dates: start: 202204
  3. PANTOPRAZOLE [Suspect]
     Active Substance: PANTOPRAZOLE
     Indication: Duodenal ulcer
     Dosage: 20 MG
  4. FAMOTIDINE [Suspect]
     Active Substance: FAMOTIDINE
     Indication: Duodenal ulcer
     Dosage: 40 MG DAILY

REACTIONS (1)
  - Electrocardiogram QT prolonged [Unknown]
